FAERS Safety Report 4435241-0 (Version None)
Quarter: 2004Q3

REPORT INFORMATION
  Report Type: 
  Country: None (occurrence: None)
  Receive Date: 20040827
  Receipt Date: 20040811
  Transmission Date: 20050211
  Serious: Yes (Other)
  Sender: FDA-Public Use
  Company Number: JP-GLAXOSMITHKLINE-B0342854A

PATIENT
  Age: 62 Year
  Sex: Female
  Weight: 44 kg

DRUGS (4)
  1. FLOLAN [Suspect]
     Indication: PULMONARY HYPERTENSION
     Route: 042
     Dates: start: 20040721
  2. LASIX [Suspect]
     Indication: CARDIAC FAILURE
     Dosage: 20MG PER DAY
     Route: 048
     Dates: start: 20040710
  3. WARFARIN SODIUM [Concomitant]
     Indication: PULMONARY HYPERTENSION
     Dosage: 3.5TAB PER DAY
     Route: 048
     Dates: start: 20040629
  4. POTASSIUM GLUCONATE [Concomitant]
     Dosage: 6UNIT PER DAY
     Route: 048
     Dates: start: 20040810

REACTIONS (3)
  - HYPOKALAEMIA [None]
  - PALPITATIONS [None]
  - VENTRICULAR EXTRASYSTOLES [None]
